FAERS Safety Report 18416902 (Version 2)
Quarter: 2020Q4

REPORT INFORMATION
  Report Type: Report from Study
  Country: US (occurrence: US)
  Receive Date: 20201022
  Receipt Date: 20201110
  Transmission Date: 20210114
  Serious: Yes (Death, Hospitalization)
  Sender: FDA-Public Use
  Company Number: US-EXELIXIS-CABO-20033450

PATIENT
  Age: 83 Year
  Sex: Male

DRUGS (1)
  1. CABOMETYX [Suspect]
     Active Substance: CABOZANTINIB S-MALATE
     Indication: RENAL CELL CARCINOMA
     Dosage: 60 MG, QD
     Dates: start: 20200905

REACTIONS (9)
  - Pneumonia [Unknown]
  - Malaise [Unknown]
  - Death [Fatal]
  - Blister [Unknown]
  - Diarrhoea [Unknown]
  - Stomatitis [Unknown]
  - Decreased appetite [Unknown]
  - Lactic acidosis [Unknown]
  - Fatigue [Unknown]

NARRATIVE: CASE EVENT DATE: 202009
